FAERS Safety Report 16988915 (Version 1)
Quarter: 2019Q4

REPORT INFORMATION
  Report Type: Spontaneous
  Country: US (occurrence: US)
  Receive Date: 20191104
  Receipt Date: 20191104
  Transmission Date: 20200122
  Serious: No
  Sender: FDA-Public Use
  Company Number: US-FARMAPROD-201909-1495

PATIENT
  Sex: Female

DRUGS (4)
  1. HYDREA [Concomitant]
     Active Substance: HYDROXYUREA
  2. OXERVATE [Suspect]
     Active Substance: CENEGERMIN-BKBJ
     Indication: HYPOAESTHESIA EYE
     Route: 047
  3. PROCRIT [Concomitant]
     Active Substance: ERYTHROPOIETIN
  4. AGRYLIN [Concomitant]
     Active Substance: ANAGRELIDE HYDROCHLORIDE

REACTIONS (3)
  - Product dose omission [Unknown]
  - Eye pain [Unknown]
  - Throat irritation [Unknown]
